FAERS Safety Report 4805272-7 (Version None)
Quarter: 2005Q4

REPORT INFORMATION
  Report Type: 
  Country: None (occurrence: None)
  Receive Date: 20051020
  Receipt Date: 20051014
  Transmission Date: 20060501
  Serious: Yes (Hospitalization)
  Sender: FDA-Public Use
  Company Number: US-MERCK-0510USA07346

PATIENT
  Age: 69 Year
  Sex: Female

DRUGS (3)
  1. FOSAMAX [Suspect]
     Indication: OSTEOPOROSIS
     Route: 048
     Dates: start: 19950101, end: 20050930
  2. SYNTHROID [Concomitant]
     Route: 065
  3. MIACALCIN [Concomitant]
     Route: 065

REACTIONS (5)
  - IMPAIRED HEALING [None]
  - JAW DISORDER [None]
  - OSTEONECROSIS [None]
  - TOOTH DISORDER [None]
  - TOOTH EXTRACTION [None]
